FAERS Safety Report 6010021-3 (Version None)
Quarter: 2008Q4

REPORT INFORMATION
  Report Type: 
  Country: None (occurrence: None)
  Receive Date: 20081218
  Receipt Date: 20081205
  Transmission Date: 20090506
  Serious: Yes (Hospitalization, Other)
  Sender: FDA-Public Use
  Company Number: US-PFIZER INC-2008025820

PATIENT
  Sex: Female
  Weight: 47.63 kg

DRUGS (11)
  1. LYRICA [Suspect]
     Indication: FIBROMYALGIA
     Dosage: 75 MG, 2X/DAY
     Route: 048
     Dates: start: 20080125, end: 20080301
  2. LYRICA [Suspect]
     Indication: NERVE INJURY
  3. LYRICA [Suspect]
     Indication: NEUROPATHY PERIPHERAL
  4. PREMARIN [Concomitant]
     Indication: HOT FLUSH
  5. PREMARIN [Concomitant]
     Indication: ILL-DEFINED DISORDER
  6. HYDROCODONE BITARTRATE [Concomitant]
     Route: 048
  7. XANAX [Concomitant]
     Indication: ANXIETY
     Route: 048
  8. FOSAMAX [Concomitant]
     Indication: OSTEOARTHRITIS
     Route: 048
  9. ALL OTHER THERAPEUTIC PRODUCTS [Concomitant]
  10. LORTAB [Concomitant]
  11. RIBOFLAVIN [Concomitant]

REACTIONS (11)
  - AGGRESSION [None]
  - COAGULOPATHY [None]
  - FOREIGN BODY TRAUMA [None]
  - HOMICIDAL IDEATION [None]
  - MENTAL DISORDER [None]
  - PAIN [None]
  - PERSONALITY CHANGE [None]
  - SPLENECTOMY [None]
  - STAPHYLOCOCCAL INFECTION [None]
  - SUICIDAL IDEATION [None]
  - SWELLING [None]
